FAERS Safety Report 18618801 (Version 1)
Quarter: 2020Q4

REPORT INFORMATION
  Report Type: Spontaneous
  Country: CH (occurrence: CH)
  Receive Date: 20201215
  Receipt Date: 20201215
  Transmission Date: 20210114
  Serious: Yes (Other)
  Sender: FDA-Public Use
  Company Number: CH-GLAXOSMITHKLINE-CH2020243011

PATIENT
  Age: 0 Year
  Sex: Female
  Weight: 1.19 kg

DRUGS (6)
  1. OXYCONTIN [Suspect]
     Active Substance: OXYCODONE HYDROCHLORIDE
     Indication: COMPLEX REGIONAL PAIN SYNDROME
     Dosage: 60 MG, QD (START AND END DATES OF TREATMENT NOT KNOWN, 60 MG / D DECREASED TO 15 MG / D IN SEPTEMBER
     Route: 064
  2. CYMBALTA [Suspect]
     Active Substance: DULOXETINE HYDROCHLORIDE
     Indication: PRODUCT USED FOR UNKNOWN INDICATION
     Dosage: UNK (DOSAGE AS WELL AS START AND END DATES OF TREATMENT NOT KNOWN)
     Route: 064
  3. SEROQUEL [Suspect]
     Active Substance: QUETIAPINE FUMARATE
     Indication: BORDERLINE PERSONALITY DISORDER
     Dosage: UNK (DOSAGE AS WELL AS DATES OF START AND END OF TREATMENT NOT KNOWN)
     Route: 064
     Dates: start: 2020, end: 2020
  4. LAMICTAL [Suspect]
     Active Substance: LAMOTRIGINE
     Indication: PRODUCT USED FOR UNKNOWN INDICATION
     Dosage: UNK
     Route: 064
     Dates: start: 2020
  5. TEMESTA (LORAZEPAM) [Suspect]
     Active Substance: LORAZEPAM
     Indication: ABDOMINAL PAIN
     Dosage: UNK (DOSAGE AS WELL AS DATE OF START OF TREATMENT NOT KNOWN, IN RESERVE;)
     Route: 064
  6. LAMICTAL [Suspect]
     Active Substance: LAMOTRIGINE
     Dosage: 25 MG, QOD
     Route: 065
     Dates: start: 202009

REACTIONS (6)
  - Leukopenia neonatal [Recovered/Resolved]
  - Neutropenia neonatal [Recovered/Resolved]
  - Foetal growth restriction [Recovered/Resolved]
  - Foetal exposure during pregnancy [Recovered/Resolved]
  - Supraventricular extrasystoles [Unknown]
  - Premature baby [Recovered/Resolved]

NARRATIVE: CASE EVENT DATE: 201911
